FAERS Safety Report 26058315 (Version 1)
Quarter: 2025Q4

REPORT INFORMATION
  Report Type: Spontaneous
  Country: US (occurrence: US)
  Receive Date: 20251118
  Receipt Date: 20251118
  Transmission Date: 20260117
  Serious: No
  Sender: AUROBINDO
  Company Number: US-AUROBINDO-AUR-APL-2025-051241

PATIENT
  Age: 75 Year
  Sex: Male
  Weight: 95.3 kg

DRUGS (5)
  1. PANTOPRAZOLE SODIUM [Suspect]
     Active Substance: PANTOPRAZOLE SODIUM
     Indication: Abdominal pain upper
     Dosage: 40 MILLIGRAM, DAILY(40 MG X 30 DAYS ONCE DAILY)
     Route: 065
     Dates: start: 20250725, end: 20250823
  2. PANTOPRAZOLE SODIUM [Suspect]
     Active Substance: PANTOPRAZOLE SODIUM
     Indication: Abdominal pain upper
     Dosage: 20 MILLIGRAM, DAILY(20 MG X 30 DAYS ONCE DAILY) )
     Route: 065
     Dates: start: 20250824, end: 20250923
  3. PANTOPRAZOLE SODIUM [Suspect]
     Active Substance: PANTOPRAZOLE SODIUM
     Dosage: 20 MILLIGRAM, DAILY
     Route: 065
     Dates: start: 20250823
  4. CYANOCOBALAMIN [Concomitant]
     Active Substance: CYANOCOBALAMIN
     Indication: Product used for unknown indication
     Dosage: 500 MICROGRAM
     Route: 065
  5. LISINOPRIL [Concomitant]
     Active Substance: LISINOPRIL
     Indication: Product used for unknown indication
     Dosage: 0.6 MILLIGRAM, DAILY
     Route: 065

REACTIONS (6)
  - Sciatica [Recovering/Resolving]
  - Pain in extremity [Recovering/Resolving]
  - Motor dysfunction [Recovering/Resolving]
  - Joint instability [Recovering/Resolving]
  - Gait inability [Recovering/Resolving]
  - Muscular weakness [Recovering/Resolving]

NARRATIVE: CASE EVENT DATE: 20250801
